FAERS Safety Report 8248697-2 (Version None)
Quarter: 2012Q1

REPORT INFORMATION
  Report Type: 
  Country: None (occurrence: None)
  Receive Date: 20120331
  Receipt Date: 20120323
  Transmission Date: 20120608
  Serious: Yes (Death, Life-Threatening, Hospitalization, Other)
  Sender: FDA-Public Use
  Company Number: PHHY2012DE025886

PATIENT
  Sex: Female
  Weight: 84 kg

DRUGS (7)
  1. ANTICOAGULANTS [Concomitant]
  2. TORASEMIDE [Concomitant]
     Indication: CARDIAC FAILURE
     Dosage: 10 MG, QD
     Route: 048
     Dates: start: 20081104
  3. NITRATES [Concomitant]
  4. RASILEZ [Suspect]
     Indication: HYPERTENSION
     Dosage: 150 MG, QD
     Route: 048
     Dates: start: 20081104, end: 20100111
  5. CALCIUM CHANNEL BLOCKERS [Concomitant]
     Dates: end: 20091020
  6. METOPROLOL SUCCINATE [Concomitant]
     Indication: HYPERTENSION
     Dosage: 50 MG, QD
     Route: 048
     Dates: start: 20081104
  7. DIURETICS [Concomitant]

REACTIONS (7)
  - ATRIAL FIBRILLATION [None]
  - MULTI-ORGAN FAILURE [None]
  - ADENOCARCINOMA [None]
  - SEPSIS [None]
  - PAIN [None]
  - RHEUMATOID ARTHRITIS [None]
  - BLOOD PRESSURE DIASTOLIC INCREASED [None]
